FAERS Safety Report 4501976-4 (Version None)
Quarter: 2004Q4

REPORT INFORMATION
  Report Type: 
  Country: None (occurrence: None)
  Receive Date: 20041109
  Receipt Date: 20041029
  Transmission Date: 20050328
  Serious: Yes (Hospitalization)
  Sender: FDA-Public Use
  Company Number: JP_040904502

PATIENT
  Age: 76 Year
  Sex: Male
  Weight: 50 kg

DRUGS (8)
  1. GEMZAR [Suspect]
     Indication: LUNG NEOPLASM MALIGNANT
     Dosage: 1000 MG OTHER
     Dates: start: 20040421, end: 20040709
  2. ALFAROL(ALFACALCIDOL) [Concomitant]
  3. AMLODIPINE BESYLATE [Concomitant]
  4. JUVELA(TOCOPHERYL NICOTINATE) [Concomitant]
  5. LEXOTAN(BROMAZEPAM) [Concomitant]
  6. AMINOPHYLLIN [Concomitant]
  7. ASASION(TRIAZOLAM) [Concomitant]
  8. GATIFLO(GATIFLOXACIN) [Concomitant]

REACTIONS (9)
  - ALANINE AMINOTRANSFERASE INCREASED [None]
  - ASPARTATE AMINOTRANSFERASE INCREASED [None]
  - BLOOD ALKALINE PHOSPHATASE INCREASED [None]
  - BLOOD LACTATE DEHYDROGENASE INCREASED [None]
  - C-REACTIVE PROTEIN INCREASED [None]
  - HEPATIC FUNCTION ABNORMAL [None]
  - MALAISE [None]
  - PNEUMONIA [None]
  - UPPER RESPIRATORY TRACT INFLAMMATION [None]
